FAERS Safety Report 4756579-3 (Version None)
Quarter: 2005Q3

REPORT INFORMATION
  Report Type: 
  Country: None (occurrence: None)
  Receive Date: 20050830
  Receipt Date: 20050825
  Transmission Date: 20060218
  Serious: Yes (Death)
  Sender: FDA-Public Use
  Company Number: US-MERCK-0508USA04159

PATIENT
  Age: 70 Year
  Sex: Female

DRUGS (4)
  1. FOSAMAX [Suspect]
     Indication: OSTEOPOROSIS
     Route: 048
     Dates: start: 20050801, end: 20050823
  2. [THERAPY UNSPECIFIED] [Concomitant]
     Indication: BLOOD PRESSURE
     Route: 065
  3. [THERAPY UNSPECIFIED] [Concomitant]
     Indication: BLOOD CHOLESTEROL ABNORMAL
     Route: 065
  4. [THERAPY UNSPECIFIED] [Concomitant]
     Indication: ANTIDEPRESSANT THERAPY
     Route: 065

REACTIONS (1)
  - EMPHYSEMA [None]
